FAERS Safety Report 8529670-3 (Version None)
Quarter: 2012Q3

REPORT INFORMATION
  Report Type: 
  Country: None (occurrence: None)
  Receive Date: 20120723
  Receipt Date: 20120711
  Transmission Date: 20120928
  Serious: Yes (Other)
  Sender: FDA-Public Use
  Company Number: US-BAYER-2012-009339

PATIENT
  Age: 70 Year
  Sex: Female

DRUGS (4)
  1. ANTIHYPERTENSIVES [Concomitant]
     Dosage: UNK
  2. NEXAVAR [Suspect]
     Indication: RENAL CANCER
     Dosage: 400 MG, BID
     Route: 048
     Dates: start: 20120111, end: 20120204
  3. NEXAVAR [Suspect]
     Dosage: 400 MG, QD
     Route: 048
     Dates: start: 20120227
  4. NEXAVAR [Suspect]
     Dosage: 400 MG, QOD
     Route: 048
     Dates: start: 20120113

REACTIONS (20)
  - BLISTER [None]
  - DIARRHOEA [None]
  - RASH MACULAR [None]
  - ORAL PAIN [None]
  - OEDEMA PERIPHERAL [None]
  - PARAESTHESIA [None]
  - ERYTHEMA [None]
  - PAIN IN EXTREMITY [None]
  - SKIN EXFOLIATION [None]
  - ADVERSE DRUG REACTION [None]
  - DRY MOUTH [None]
  - GLOSSODYNIA [None]
  - PALMAR-PLANTAR ERYTHRODYSAESTHESIA SYNDROME [None]
  - PAIN OF SKIN [None]
  - HYPERKERATOSIS [None]
  - DRY SKIN [None]
  - BLOOD PRESSURE INCREASED [None]
  - HYPERAESTHESIA [None]
  - SKIN BURNING SENSATION [None]
  - RASH [None]
